FAERS Safety Report 4603171-7 (Version None)
Quarter: 2005Q2

REPORT INFORMATION
  Report Type: 
  Country: None (occurrence: None)
  Receive Date: 20050307
  Receipt Date: 20050221
  Transmission Date: 20051028
  Serious: Yes (Hospitalization)
  Sender: FDA-Public Use
  Company Number: 2005AP00239

PATIENT
  Age: 54 Year
  Sex: Female
  Weight: 54 kg

DRUGS (15)
  1. DIPRIVAN [Suspect]
     Indication: INDUCTION OF ANAESTHESIA
     Dosage: 15 MG/KG /HR IV
     Route: 042
     Dates: start: 20050112, end: 20050112
  2. DIPRIVAN [Suspect]
     Indication: MAINTENANCE OF ANAESTHESIA
     Dosage: 15 MG/KG /HR IV
     Route: 042
     Dates: start: 20050112, end: 20050112
  3. DIPRIVAN [Suspect]
     Indication: INDUCTION OF ANAESTHESIA
     Dosage: 25 MG/KG /HR IV
     Route: 042
     Dates: start: 20050112, end: 20050112
  4. DIPRIVAN [Suspect]
     Indication: MAINTENANCE OF ANAESTHESIA
     Dosage: 25 MG/KG /HR IV
     Route: 042
     Dates: start: 20050112, end: 20050112
  5. PANSPORIN [Suspect]
     Dosage: 1 G BID IV
     Route: 042
     Dates: start: 20050112, end: 20050113
  6. MUSCULAX [Concomitant]
  7. FENTANEST [Concomitant]
  8. ATROPINE SULFATE [Concomitant]
  9. VAGOSTIGMIN [Concomitant]
  10. ZANTAC [Concomitant]
  11. ATARAX [Concomitant]
  12. VEEN-F [Concomitant]
  13. SOLITA T [Concomitant]
  14. ESRON [Concomitant]
  15. PHYSIO 35 [Concomitant]

REACTIONS (1)
  - LIVER DISORDER [None]
